FAERS Safety Report 6062321-9 (Version None)
Quarter: 2009Q1

REPORT INFORMATION
  Report Type: 
  Country: None (occurrence: None)
  Receive Date: 20090203
  Receipt Date: 20090123
  Transmission Date: 20090719
  Serious: Yes (Hospitalization, Other)
  Sender: FDA-Public Use
  Company Number: PHEH2009US01100

PATIENT
  Sex: Male

DRUGS (3)
  1. EXELON [Suspect]
     Dosage: 4.6 MG, UNK
     Route: 062
  2. EXELON [Suspect]
     Dosage: 9.5 MG, UNK
     Route: 062
  3. EXELON [Suspect]
     Dosage: 4 MG
     Route: 062

REACTIONS (3)
  - CYSTITIS [None]
  - HYPERTENSION [None]
  - INSOMNIA [None]
